FAERS Safety Report 6552033-7 (Version None)
Quarter: 2010Q1

REPORT INFORMATION
  Report Type: 
  Country: None (occurrence: None)
  Receive Date: 20100126
  Receipt Date: 20100119
  Transmission Date: 20100710
  Serious: Yes (Hospitalization)
  Sender: FDA-Public Use
  Company Number: DE-ROCHE-681018

PATIENT
  Sex: Male
  Weight: 64 kg

DRUGS (5)
  1. PEG-INTERFERON A-2A (RO 25-8310) [Suspect]
     Route: 058
     Dates: start: 20090715, end: 20100112
  2. RIBAVIRIN [Suspect]
     Route: 048
     Dates: start: 20090715, end: 20100112
  3. CYMBALTA [Concomitant]
     Indication: DEPRESSED MOOD
     Route: 048
     Dates: start: 20091026
  4. FENISTIL(DIMETINDENE) [Concomitant]
     Route: 048
     Dates: start: 20091026
  5. DERMATOP [Concomitant]
     Indication: ECZEMA
     Route: 061
     Dates: start: 20091026

REACTIONS (1)
  - SYNCOPE [None]
